FAERS Safety Report 4814214-X (Version None)
Quarter: 2005Q4

REPORT INFORMATION
  Report Type: 
  Country: None (occurrence: None)
  Receive Date: 20051028
  Receipt Date: 20050720
  Transmission Date: 20060501
  Serious: No
  Sender: FDA-Public Use
  Company Number: US-GLAXOSMITHKLINE-A0567062A

PATIENT
  Age: 65 Year
  Sex: Female

DRUGS (6)
  1. ADVAIR DISKUS 100/50 [Suspect]
     Indication: CHRONIC OBSTRUCTIVE PULMONARY DISEASE
     Dosage: 1PUFF TWICE PER DAY
     Route: 055
  2. SPIRIVA [Concomitant]
  3. HYZAAR [Concomitant]
  4. PREMARIN [Concomitant]
  5. ALPRAZOLAM [Concomitant]
  6. PAMELOR [Concomitant]

REACTIONS (3)
  - DYSPHONIA [None]
  - INCREASED UPPER AIRWAY SECRETION [None]
  - THROAT IRRITATION [None]
